FAERS Safety Report 23861155 (Version 1)
Quarter: 2024Q2

REPORT INFORMATION
  Report Type: Spontaneous
  Country: US (occurrence: US)
  Receive Date: 20240516
  Receipt Date: 20240516
  Transmission Date: 20240716
  Serious: Yes (Other)
  Sender: FDA-Public Use
  Company Number: US-SANDOZ-SDZ2024US048686

PATIENT
  Sex: Female

DRUGS (1)
  1. RECLAST [Suspect]
     Active Substance: ZOLEDRONIC ACID
     Indication: Product used for unknown indication
     Dosage: 5MG/100ML 1LIVI
     Route: 065

REACTIONS (10)
  - Choroidal effusion [Unknown]
  - Pyrexia [Unknown]
  - Inflammation [Unknown]
  - Joint swelling [Unknown]
  - Pain in extremity [Unknown]
  - Headache [Unknown]
  - Jaw disorder [Unknown]
  - Musculoskeletal discomfort [Unknown]
  - Blood glucose increased [Unknown]
  - Visual impairment [Unknown]
